FAERS Safety Report 22385454 (Version 1)
Quarter: 2023Q2

REPORT INFORMATION
  Report Type: Spontaneous
  Country: CA (occurrence: CA)
  Receive Date: 20230530
  Receipt Date: 20230530
  Transmission Date: 20230722
  Serious: No
  Sender: FDA-Public Use
  Company Number: CA-PFIZER INC-PV202300093716

PATIENT
  Age: 70 Year
  Sex: Male
  Weight: 68.95 kg

DRUGS (1)
  1. PAXLOVID [Suspect]
     Active Substance: NIRMATRELVIR\RITONAVIR
     Indication: COVID-19 treatment
     Dosage: (150MG) NIRMATRELVIR AND 1 (100MG) RITONAVIR AT 8AM

REACTIONS (1)
  - Incorrect dose administered [Unknown]
